FAERS Safety Report 5011898-0 (Version None)
Quarter: 2006Q2

REPORT INFORMATION
  Report Type: 
  Country: None (occurrence: None)
  Receive Date: 20060524
  Receipt Date: 20060524
  Transmission Date: 20061013
  Serious: Yes (Hospitalization)
  Sender: FDA-Public Use
  Company Number: None

PATIENT
  Age: 81 Year
  Sex: Male
  Weight: 72.5755 kg

DRUGS (1)
  1. WARFARIN SODIUM [Suspect]
     Dosage: 5 MG PO QD
     Route: 048

REACTIONS (6)
  - DRUG TOXICITY [None]
  - HAEMATOCRIT DECREASED [None]
  - HAEMATURIA [None]
  - INTERNATIONAL NORMALISED RATIO INCREASED [None]
  - LYMPHADENOPATHY [None]
  - METASTASIS [None]
